FAERS Safety Report 6327574-8 (Version None)
Quarter: 2009Q3

REPORT INFORMATION
  Report Type: 
  Country: None (occurrence: None)
  Receive Date: 20090825
  Receipt Date: 20090818
  Transmission Date: 20100115
  Serious: Yes (Other)
  Sender: FDA-Public Use
  Company Number: US-ELI_LILLY_AND_COMPANY-US200907003272

PATIENT
  Sex: Female
  Weight: 39.456 kg

DRUGS (21)
  1. HUMALOG [Suspect]
     Indication: DIABETES MELLITUS
     Dosage: UNK, AS NEEDED
     Dates: start: 20080101
  2. HUMALOG [Suspect]
  3. PROGRAF [Concomitant]
     Dosage: 5 MG, EACH EVENING
  4. PROGRAF [Concomitant]
     Dosage: 5 MG, EACH MORNING
  5. MYFORTIC [Concomitant]
     Dosage: 180 MG, EACH MORNING
  6. AMLODIPINE [Concomitant]
     Dosage: 5 MG, EACH MORNING
  7. PRAVASTATIN [Concomitant]
     Dosage: 20 MG, EACH EVENING
  8. GLUCOPHAGE [Concomitant]
     Dosage: 500 MG, EACH MORNING
  9. GLUCOPHAGE [Concomitant]
     Dosage: 500 MG, EACH EVENING
  10. GLYBURIDE [Concomitant]
     Dosage: 5 MG, EACH MORNING
  11. GLYBURIDE [Concomitant]
     Dosage: 5 MG, EACH EVENING
  12. ASPIRIN [Concomitant]
     Dosage: 325 MG, EACH MORNING
  13. QVAR 40 [Concomitant]
     Dosage: 2 D/F, EACH MORNING
  14. QVAR 40 [Concomitant]
     Dosage: 2 D/F, EACH EVENING
  15. MULTI-VITAMIN [Concomitant]
     Dosage: 2 D/F, EACH MORNING
  16. TEGRETOL [Concomitant]
     Dosage: 100 MG, EACH MORNING
  17. TEGRETOL [Concomitant]
     Dosage: 100 MG, EACH EVENING
  18. CALCIUM [Concomitant]
     Dosage: 1250 MG, EACH MORNING
  19. CALCIUM [Concomitant]
     Dosage: 1250 MG, EACH EVENING
  20. NEURONTIN [Concomitant]
     Dosage: 300 MG, EACH EVENING
  21. EPOGEN [Concomitant]
     Dosage: 20000 U, MONTHLY (1/M)

REACTIONS (3)
  - DRUG DISPENSING ERROR [None]
  - MEDICATION ERROR [None]
  - RENAL TRANSPLANT [None]
